FAERS Safety Report 11106053 (Version 1)
Quarter: 2015Q2

REPORT INFORMATION
  Report Type: Spontaneous
  Country: US (occurrence: US)
  Receive Date: 20150512
  Receipt Date: 20150512
  Transmission Date: 20150821
  Serious: No
  Sender: FDA-Public Use
  Company Number: US-JNJFOC-20150412797

PATIENT
  Age: 21 Year
  Sex: Male
  Weight: 103.42 kg

DRUGS (1)
  1. INVEGA SUSTENNA [Suspect]
     Active Substance: PALIPERIDONE PALMITATE
     Indication: PRODUCT USED FOR UNKNOWN INDICATION
     Route: 030
     Dates: start: 20150217

REACTIONS (4)
  - Insomnia [Unknown]
  - Paranoia [Unknown]
  - Crying [Unknown]
  - Tremor [Unknown]

NARRATIVE: CASE EVENT DATE: 20150412
